FAERS Safety Report 8801665 (Version 2)
Quarter: 2015Q2

REPORT INFORMATION
  Report Type: Report from Study
  Country: US (occurrence: US)
  Receive Date: 20120921
  Receipt Date: 20150630
  Transmission Date: 20150821
  Serious: Yes (Death)
  Sender: FDA-Public Use
  Company Number: US-ROCHE-1122878

PATIENT
  Sex: Male

DRUGS (6)
  1. IRINOTECAN [Concomitant]
     Active Substance: IRINOTECAN
     Route: 042
     Dates: start: 20050929
  2. ATROPINE [Concomitant]
     Active Substance: ATROPINE
     Route: 042
  3. AVASTIN [Suspect]
     Active Substance: BEVACIZUMAB
     Indication: BRAIN NEOPLASM MALIGNANT
     Dosage: 13/OCT/2005, 27/OCT/2005,
     Route: 042
     Dates: start: 20050929
  4. LOPERMIDE [Concomitant]
     Route: 048
  5. GRANISETRON [Concomitant]
     Active Substance: GRANISETRON
     Route: 048
  6. LOPERMIDE [Concomitant]
     Route: 048

REACTIONS (2)
  - Death [Fatal]
  - Off label use [Unknown]
